FAERS Safety Report 18207139 (Version 1)
Quarter: 2020Q3

REPORT INFORMATION
  Report Type: Spontaneous
  Country: UA (occurrence: UA)
  Receive Date: 20200828
  Receipt Date: 20200828
  Transmission Date: 20201103
  Serious: Yes (Other)
  Sender: FDA-Public Use
  Company Number: NVSC2020UA229774

PATIENT
  Age: 57 Year
  Sex: Female

DRUGS (2)
  1. PACLITAXEL. [Suspect]
     Active Substance: PACLITAXEL
     Indication: GASTROINTESTINAL CARCINOMA
     Dosage: UNK
     Route: 065
     Dates: start: 201205, end: 201210
  2. CARBOPLATIN. [Suspect]
     Active Substance: CARBOPLATIN
     Indication: GASTROINTESTINAL CARCINOMA
     Dosage: UNK
     Route: 065
     Dates: start: 201205, end: 201210

REACTIONS (2)
  - Acute monocytic leukaemia [Unknown]
  - Second primary malignancy [Unknown]

NARRATIVE: CASE EVENT DATE: 201703
